FAERS Safety Report 18173228 (Version 4)
Quarter: 2021Q1

REPORT INFORMATION
  Report Type: Report from Study
  Country: US (occurrence: US)
  Receive Date: 20200819
  Receipt Date: 20210319
  Transmission Date: 20210419
  Serious: No
  Sender: FDA-Public Use
  Company Number: NVSC2020US228985

PATIENT
  Sex: Female

DRUGS (1)
  1. COSENTYX [Suspect]
     Active Substance: SECUKINUMAB
     Indication: PSORIASIS
     Dosage: 300 MG, QMO
     Route: 058

REACTIONS (7)
  - Injection site pain [Unknown]
  - Injection site haemorrhage [Unknown]
  - Psoriasis [Recovered/Resolved with Sequelae]
  - Joint stiffness [Recovered/Resolved with Sequelae]
  - Injection site bruising [Unknown]
  - Injection site mass [Unknown]
  - Device difficult to use [Unknown]
